FAERS Safety Report 5690636-2 (Version None)
Quarter: 2008Q1

REPORT INFORMATION
  Report Type: 
  Country: None (occurrence: None)
  Receive Date: 20080331
  Receipt Date: 20080331
  Transmission Date: 20080703
  Serious: No
  Sender: FDA-Public Use
  Company Number: None

PATIENT
  Sex: Female
  Weight: 81.6475 kg

DRUGS (2)
  1. SINGULAIR [Suspect]
     Indication: DYSPNOEA
     Dosage: 1 TABLET 1 TIME A DAY PO
     Route: 048
     Dates: start: 20060501
  2. SINGULAIR [Suspect]
     Indication: HYPERSENSITIVITY
     Dosage: 1 TABLET 1 TIME A DAY PO
     Route: 048
     Dates: start: 20060501

REACTIONS (1)
  - WEIGHT INCREASED [None]
